FAERS Safety Report 17703588 (Version 1)
Quarter: 2020Q2

REPORT INFORMATION
  Report Type: Spontaneous
  Country: US (occurrence: US)
  Receive Date: 20200424
  Receipt Date: 20200424
  Transmission Date: 20200714
  Serious: Yes (Life-Threatening, Hospitalization, Other)
  Sender: FDA-Public Use
  Company Number: US-ALVOGEN-2020-ALVOGEN-108178

PATIENT
  Age: 43 Year
  Sex: Male

DRUGS (5)
  1. GABAPENTIN. [Suspect]
     Active Substance: GABAPENTIN
     Indication: ALCOHOL WITHDRAWAL SYNDROME
     Dosage: THEN 1 CAP TWICE A DAY, THEN 2 CAPS DAILY AT BEDTIME AND DISCONTINUE
     Route: 048
  2. PREDNISONE. [Interacting]
     Active Substance: PREDNISONE
     Indication: PRODUCT USED FOR UNKNOWN INDICATION
     Dosage: 20 MG: TAKE 3 TABLETS ORALLY EVERY MORNING?FOR 28 DAYS
  3. CLONIDINE. [Interacting]
     Active Substance: CLONIDINE
     Indication: ALCOHOL WITHDRAWAL SYNDROME
     Dosage: 0.1 MG/24 H
  4. ASCORBIC ACID/FOLIC ACID/IRON/LYSINE HYDROCHLORIDE/NICOTINIC ACID/PYRIDOXINE HYDROCHLORIDE/RIBOFLAVI [Concomitant]
     Indication: PRODUCT USED FOR UNKNOWN INDICATION
     Dosage: IRON ONE TABLET BY MOUTH DAILY
     Route: 048
  5. FOLIC ACID. [Concomitant]
     Active Substance: FOLIC ACID
     Indication: PRODUCT USED FOR UNKNOWN INDICATION
     Dosage: 1 MG TABLET TAKE ONE BY MOUTH DAILY
     Route: 048

REACTIONS (5)
  - Suicide attempt [Unknown]
  - Off label use [Unknown]
  - Drug interaction [Unknown]
  - Cardiac arrest [Unknown]
  - Gun shot wound [Unknown]
